FAERS Safety Report 16465377 (Version 1)
Quarter: 2019Q2

REPORT INFORMATION
  Report Type: Report from Study
  Country: US (occurrence: US)
  Receive Date: 20190621
  Receipt Date: 20190621
  Transmission Date: 20190711
  Serious: Yes (Hospitalization)
  Sender: FDA-Public Use
  Company Number: US-ALEXION PHARMACEUTICALS INC-A201909329

PATIENT
  Age: 64 Year
  Sex: Male

DRUGS (2)
  1. KANUMA [Suspect]
     Active Substance: SEBELIPASE ALFA
     Indication: OFF LABEL USE
  2. KANUMA [Suspect]
     Active Substance: SEBELIPASE ALFA
     Indication: FABRY^S DISEASE
     Dosage: 1 MG/KG, Q2W
     Route: 042
     Dates: start: 20190521

REACTIONS (2)
  - Hospitalisation [Not Recovered/Not Resolved]
  - Off label use [Unknown]
